FAERS Safety Report 24314381 (Version 1)
Quarter: 2024Q3

REPORT INFORMATION
  Report Type: Spontaneous
  Country: US (occurrence: US)
  Receive Date: 20240913
  Receipt Date: 20240913
  Transmission Date: 20241016
  Serious: No
  Sender: PURACAP
  Company Number: US-PURACAP-US-2024EPCSPO01097

PATIENT
  Age: 68 Year
  Sex: Female
  Weight: 58.05 kg

DRUGS (4)
  1. OMEGA-3-ACID ETHYL ESTERS [Suspect]
     Active Substance: OMEGA-3-ACID ETHYL ESTERS
     Indication: Lipids increased
     Route: 048
     Dates: start: 202408, end: 202408
  2. CALCIUM [Concomitant]
     Active Substance: CALCIUM
     Indication: Product used for unknown indication
     Route: 065
  3. MAGNESIUM [Concomitant]
     Active Substance: MAGNESIUM
     Indication: Product used for unknown indication
     Route: 065
  4. VITAMIN D NOS [Concomitant]
     Active Substance: CHOLECALCIFEROL\ERGOCALCIFEROL
     Indication: Product used for unknown indication
     Route: 065

REACTIONS (5)
  - Diarrhoea [Recovered/Resolved]
  - Abdominal pain upper [Recovered/Resolved]
  - Nausea [Recovered/Resolved]
  - Malaise [Recovered/Resolved]
  - Product odour abnormal [Unknown]

NARRATIVE: CASE EVENT DATE: 20240801
